FAERS Safety Report 13484401 (Version 2)
Quarter: 2017Q2

REPORT INFORMATION
  Report Type: Spontaneous
  Country: IT (occurrence: IT)
  Receive Date: 20170425
  Receipt Date: 20170502
  Transmission Date: 20170830
  Serious: Yes (Other)
  Sender: FDA-Public Use
  Company Number: IT-CIPLA LTD.-2017IT07193

PATIENT

DRUGS (2)
  1. ALIMTA [Suspect]
     Active Substance: PEMETREXED DISODIUM
     Indication: LUNG ADENOCARCINOMA
     Dosage: 890 MG, CYCLICAL
     Route: 042
     Dates: start: 20170228, end: 20170321
  2. CARBOPLATIN. [Suspect]
     Active Substance: CARBOPLATIN
     Indication: LUNG ADENOCARCINOMA
     Dosage: 400 MG, CYCLICAL
     Route: 042
     Dates: start: 20170228, end: 20170321

REACTIONS (6)
  - Dyspnoea exertional [Unknown]
  - Pyrexia [Unknown]
  - Pollakiuria [Unknown]
  - Haemoglobin decreased [Unknown]
  - Condition aggravated [Unknown]
  - Asthenia [Unknown]

NARRATIVE: CASE EVENT DATE: 20170411
